FAERS Safety Report 6781683-8 (Version None)
Quarter: 2010Q2

REPORT INFORMATION
  Report Type: 
  Country: None (occurrence: None)
  Receive Date: 20100617
  Receipt Date: 20100617
  Transmission Date: 20101027
  Serious: Yes (Hospitalization)
  Sender: FDA-Public Use
  Company Number: None

PATIENT
  Sex: Female
  Weight: 86 kg

DRUGS (2)
  1. ASPIRIN [Suspect]
     Indication: ANTICOAGULANT THERAPY
  2. VITAMIN TAB [Concomitant]

REACTIONS (1)
  - ABDOMINAL PAIN [None]
